FAERS Safety Report 13763479 (Version 1)
Quarter: 2017Q3

REPORT INFORMATION
  Report Type: Spontaneous
  Country: US (occurrence: US)
  Receive Date: 20170718
  Receipt Date: 20170718
  Transmission Date: 20171127
  Serious: Yes (Other)
  Sender: FDA-Public Use
  Company Number: US-UNITED THERAPEUTICS-UNT-2017-009009

PATIENT
  Age: 70 Year
  Sex: Female
  Weight: 45.35 kg

DRUGS (3)
  1. TRACLEER [Suspect]
     Active Substance: BOSENTAN
     Indication: PRODUCT USED FOR UNKNOWN INDICATION
     Dosage: UNK
     Route: 065
  2. TYVASO [Suspect]
     Active Substance: TREPROSTINIL
     Indication: PULMONARY ARTERIAL HYPERTENSION
     Dosage: 18-72 MICROGRAMS, QID
     Dates: start: 20140311
  3. TYVASO [Suspect]
     Active Substance: TREPROSTINIL
     Dosage: 18-72 MICROGRAMS, QID

REACTIONS (12)
  - Sleep study abnormal [Unknown]
  - Flatulence [Unknown]
  - Abdominal pain [Unknown]
  - Contusion [Unknown]
  - Rash macular [Unknown]
  - Syncope [Unknown]
  - Dehydration [Unknown]
  - Fall [Recovered/Resolved]
  - Loss of consciousness [Unknown]
  - Nasopharyngitis [Unknown]
  - Off label use [Unknown]
  - Abdominal discomfort [Unknown]

NARRATIVE: CASE EVENT DATE: 2017
